FAERS Safety Report 4951180-0 (Version None)
Quarter: 2006Q1

REPORT INFORMATION
  Report Type: 
  Country: None (occurrence: None)
  Receive Date: 20060315
  Receipt Date: 20060224
  Transmission Date: 20060701
  Serious: Yes (Hospitalization, Other)
  Sender: FDA-Public Use
  Company Number: RO200602001185

PATIENT
  Age: 17 Year
  Sex: Female

DRUGS (1)
  1. STRATTERA [Suspect]
     Dosage: 560 MG, OTHER, ORAL
     Route: 048
     Dates: start: 20060201, end: 20060201

REACTIONS (8)
  - BLOOD GLUCOSE INCREASED [None]
  - BLOOD UREA INCREASED [None]
  - DIZZINESS [None]
  - GENERAL PHYSICAL HEALTH DETERIORATION [None]
  - HYPERAEMIA [None]
  - INTENTIONAL OVERDOSE [None]
  - NAUSEA [None]
  - SUICIDE ATTEMPT [None]
